FAERS Safety Report 26061801 (Version 3)
Quarter: 2025Q4

REPORT INFORMATION
  Report Type: Report from Study
  Country: CN (occurrence: CN)
  Receive Date: 20251118
  Receipt Date: 20251214
  Transmission Date: 20260118
  Serious: Yes (Hospitalization)
  Sender: ABBVIE
  Company Number: CN-ABBVIE-6549607

PATIENT
  Age: 67 Year
  Sex: Female
  Weight: 70 kg

DRUGS (5)
  1. RINVOQ [Suspect]
     Active Substance: UPADACITINIB
     Indication: Dermatitis atopic
     Dosage: FORM STRENGTH: 15 MILLIGRAM, PROLONGED-RELEASE TABLET
     Route: 048
     Dates: start: 20250228, end: 202504
  2. HYDROCHLOROTHIAZIDE\IRBESARTAN [Concomitant]
     Active Substance: HYDROCHLOROTHIAZIDE\IRBESARTAN
     Indication: Hypertension
     Dates: start: 2020
  3. CRISABOROLE [Concomitant]
     Active Substance: CRISABOROLE
     Indication: Dermatitis atopic
     Route: 061
     Dates: start: 20250228
  4. ETOFESALAMIDE [Concomitant]
     Indication: Dermatitis atopic
     Dosage: 1 GRAM, TOPICAL OINTMENT
     Route: 061
     Dates: start: 20250228
  5. METFORMIN HYDROCHLORIDE [Concomitant]
     Active Substance: METFORMIN HYDROCHLORIDE
     Indication: Hypertension
     Dates: start: 2022

REACTIONS (1)
  - Lumbar spinal stenosis [Recovered/Resolved]

NARRATIVE: CASE EVENT DATE: 20251113
